FAERS Safety Report 7200817-4 (Version None)
Quarter: 2010Q4

REPORT INFORMATION
  Report Type: 
  Country: None (occurrence: None)
  Receive Date: 20101228
  Receipt Date: 20101227
  Transmission Date: 20110411
  Serious: Yes (Other)
  Sender: FDA-Public Use
  Company Number: DE-PFIZER INC-2010172260

PATIENT
  Age: 53 Year
  Sex: Female

DRUGS (5)
  1. ZELDOX [Suspect]
     Indication: SCHIZOPHRENIA
     Dosage: 20 MG, 1X/DAY
     Dates: start: 20101109, end: 20101101
  2. ZELDOX [Suspect]
     Dosage: 20 MG IN THE MORNING / 40 MG IN THE EVENING
     Dates: start: 20101124, end: 20101203
  3. ZELDOX [Suspect]
     Dosage: 40 MG, 1X/DAY
     Dates: start: 20101201
  4. FLUANXOL DEPOT [Concomitant]
     Dosage: 1 ML, UNK
     Dates: start: 20101001, end: 20101101
  5. AKINETON [Concomitant]
     Dosage: 2 X 1
     Dates: start: 20101001

REACTIONS (6)
  - AKATHISIA [None]
  - EXTRAPYRAMIDAL DISORDER [None]
  - LACRIMATION INCREASED [None]
  - MUSCLE SPASMS [None]
  - SALIVARY HYPERSECRETION [None]
  - VISUAL IMPAIRMENT [None]
